FAERS Safety Report 11807239 (Version 1)
Quarter: 2015Q4

REPORT INFORMATION
  Report Type: Spontaneous
  Country: US (occurrence: US)
  Receive Date: 20151207
  Receipt Date: 20151207
  Transmission Date: 20160305
  Serious: No
  Sender: FDA-Public Use
  Company Number: US-FRI-1000074864

PATIENT
  Sex: Male

DRUGS (1)
  1. LEVOTHROID [Suspect]
     Active Substance: LEVOTHYROXINE SODIUM

REACTIONS (4)
  - Fatigue [Unknown]
  - Hyperhidrosis [Unknown]
  - Temperature intolerance [Unknown]
  - Pyrexia [Unknown]
